FAERS Safety Report 7319948-3 (Version None)
Quarter: 2011Q1

REPORT INFORMATION
  Report Type: 
  Country: None (occurrence: None)
  Receive Date: 20110228
  Receipt Date: 20101222
  Transmission Date: 20110831
  Serious: No
  Sender: FDA-Public Use
  Company Number: A0901407A

PATIENT
  Age: 44 Year
  Sex: Female

DRUGS (3)
  1. PREVACID [Concomitant]
  2. BLOOD PRESSURE MEDICATION [Concomitant]
  3. LAMICTAL [Suspect]
     Indication: BIPOLAR DISORDER
     Dosage: 100MG PER DAY
     Route: 048

REACTIONS (1)
  - HEADACHE [None]
